FAERS Safety Report 23544640 (Version 1)
Quarter: 2024Q1

REPORT INFORMATION
  Report Type: Spontaneous
  Country: US (occurrence: US)
  Receive Date: 20240220
  Receipt Date: 20240220
  Transmission Date: 20240410
  Serious: No
  Sender: FDA-Public Use
  Company Number: US-INCYTE CORPORATION-2024IN001541

PATIENT

DRUGS (1)
  1. JAKAFI [Suspect]
     Active Substance: RUXOLITINIB
     Dosage: 10 MILLIGRAM, QD
     Route: 048

REACTIONS (6)
  - Gastrointestinal disorder [Unknown]
  - Fungal infection [Unknown]
  - Nail infection [Unknown]
  - Condition aggravated [Unknown]
  - Pain [Unknown]
  - Nausea [Unknown]
